FAERS Safety Report 5302057-2 (Version None)
Quarter: 2007Q2

REPORT INFORMATION
  Report Type: 
  Country: None (occurrence: None)
  Receive Date: 20070416
  Receipt Date: 20070416
  Transmission Date: 20071010
  Serious: Yes (Death)
  Sender: FDA-Public Use
  Company Number: None

PATIENT
  Age: 91 Year
  Sex: Male
  Weight: 68.4932 kg

DRUGS (2)
  1. SULFAMETHOXALG/TMP DS TABLET LANNETT.INC [Suspect]
     Indication: NAIL INFECTION
     Dosage: ONE TABLET  TWICE A DAY
     Dates: start: 20070124, end: 20070213
  2. LEVAQUIN [Suspect]
     Indication: NAIL INFECTION
     Dates: start: 20070124, end: 20070213

REACTIONS (14)
  - ADVERSE DRUG REACTION [None]
  - BLOOD POTASSIUM ABNORMAL [None]
  - CARDIAC DISORDER [None]
  - CARDIAC FIBRILLATION [None]
  - DEMENTIA ALZHEIMER'S TYPE [None]
  - DYSPHAGIA [None]
  - FALL [None]
  - HALLUCINATION [None]
  - HEADACHE [None]
  - LIVING IN RESIDENTIAL INSTITUTION [None]
  - LOSS OF CONTROL OF LEGS [None]
  - MUSCULAR WEAKNESS [None]
  - ORAL INTAKE REDUCED [None]
  - RASH [None]
